FAERS Safety Report 15799550 (Version 1)
Quarter: 2019Q1

REPORT INFORMATION
  Report Type: Spontaneous
  Country: GB (occurrence: GB)
  Receive Date: 20190108
  Receipt Date: 20190108
  Transmission Date: 20190417
  Serious: Yes (Life-Threatening, Disabling)
  Sender: FDA-Public Use
  Company Number: GB-ACCORD-101060

PATIENT
  Age: 71 Year
  Sex: Female
  Weight: 58 kg

DRUGS (7)
  1. OMEPRAZOLE. [Concomitant]
     Active Substance: OMEPRAZOLE
     Dates: start: 20180223
  2. ACETYLSALICYLIC ACID [Concomitant]
     Active Substance: ASPIRIN
     Dates: start: 20180223
  3. ATORVASTATIN/ATORVASTATIN CALCIUM [Suspect]
     Active Substance: ATORVASTATIN CALCIUM
     Indication: PRODUCT USED FOR UNKNOWN INDICATION
  4. TICAGRELOR. [Concomitant]
     Active Substance: TICAGRELOR
     Dosage: FOR 1 YEAR
     Dates: start: 20180223
  5. BISOPROLOL [Concomitant]
     Active Substance: BISOPROLOL
     Dates: start: 20180223
  6. RAMIPRIL. [Concomitant]
     Active Substance: RAMIPRIL
     Dates: start: 20180223
  7. LORATADINE. [Concomitant]
     Active Substance: LORATADINE
     Dates: start: 20180305

REACTIONS (4)
  - Rash generalised [Unknown]
  - Drug hypersensitivity [Recovering/Resolving]
  - Lip swelling [Unknown]
  - Chapped lips [Unknown]

NARRATIVE: CASE EVENT DATE: 20180302
